FAERS Safety Report 7768083-9 (Version None)
Quarter: 2011Q3

REPORT INFORMATION
  Report Type: 
  Country: None (occurrence: None)
  Receive Date: 20110922
  Receipt Date: 20110920
  Transmission Date: 20111222
  Serious: Yes (Life-Threatening, Hospitalization)
  Sender: FDA-Public Use
  Company Number: FR-PFIZER INC-2011069260

PATIENT
  Age: 23 Month
  Sex: Male
  Weight: 11.3 kg

DRUGS (2)
  1. CHILDREN'S ADVIL [Suspect]
     Indication: PYREXIA
     Dosage: 1 WEIGHT-DOSE, 3X/DAY
     Route: 048
     Dates: start: 20101028, end: 20101101
  2. PARACETAMOL [Concomitant]
     Indication: PYREXIA
     Dosage: UNK MG/KG, UNK
     Route: 048
     Dates: start: 20101028, end: 20101105

REACTIONS (1)
  - PNEUMONIA PNEUMOCOCCAL [None]
